FAERS Safety Report 22987638 (Version 5)
Quarter: 2023Q4

REPORT INFORMATION
  Report Type: Spontaneous
  Country: ES (occurrence: None)
  Receive Date: 20230926
  Receipt Date: 20231102
  Transmission Date: 20240109
  Serious: Yes (Death, Life-Threatening, Hospitalization, Other)
  Sender: FDA-Public Use
  Company Number: 2023A216699

PATIENT
  Age: 49 Year
  Sex: Female

DRUGS (3)
  1. SAPHNELO [Suspect]
     Active Substance: ANIFROLUMAB-FNIA
     Indication: Systemic lupus erythematosus
     Route: 042
     Dates: start: 20230915, end: 20230915
  2. METHOTREXATE [Concomitant]
     Active Substance: METHOTREXATE
     Indication: Systemic lupus erythematosus
     Route: 058
     Dates: start: 20230308, end: 20230921
  3. HYDROXYCHLOROQUINE [Concomitant]
     Active Substance: HYDROXYCHLOROQUINE
     Indication: Systemic lupus erythematosus
     Route: 048
     Dates: start: 20221026, end: 20230921

REACTIONS (10)
  - Pneumonia legionella [Fatal]
  - Arthralgia [Unknown]
  - Legionella infection [Unknown]
  - Multiple organ dysfunction syndrome [Fatal]
  - Lung infiltration [Unknown]
  - Coagulopathy [Fatal]
  - Acute kidney injury [Fatal]
  - Pancytopenia [Fatal]
  - Lymphopenia [Fatal]
  - Thrombocytopenia [Fatal]

NARRATIVE: CASE EVENT DATE: 20230916
